FAERS Safety Report 6669739-1 (Version None)
Quarter: 2010Q2

REPORT INFORMATION
  Report Type: 
  Country: None (occurrence: None)
  Receive Date: 20100406
  Receipt Date: 20100401
  Transmission Date: 20101027
  Serious: Yes (Hospitalization, Disabling)
  Sender: FDA-Public Use
  Company Number: US-MERCK-0705USA00823

PATIENT
  Age: 69 Year
  Sex: Female

DRUGS (14)
  1. FOSAMAX [Suspect]
     Indication: OSTEOPOROSIS
     Route: 048
     Dates: start: 19960101, end: 20080101
  2. FOSAMAX [Suspect]
     Indication: FRACTURED SACRUM
     Route: 048
     Dates: start: 19960101, end: 20080101
  3. TAMOXIFEN CITRATE [Concomitant]
     Indication: BREAST CANCER
     Route: 048
     Dates: start: 20000101, end: 20050101
  4. COUMADIN [Concomitant]
     Indication: ATRIAL FIBRILLATION
     Route: 048
     Dates: start: 19980101
  5. ATENOLOL [Concomitant]
     Indication: HEART RATE ABNORMAL
     Route: 048
     Dates: start: 19980101
  6. RAMIPRIL [Concomitant]
     Indication: HEART RATE ABNORMAL
     Route: 065
     Dates: start: 19980101
  7. VIOXX [Concomitant]
     Route: 048
     Dates: start: 20040101
  8. MELOXICAM [Concomitant]
     Indication: ARTHRITIS
     Route: 065
     Dates: start: 20040101
  9. PERCOCET [Concomitant]
     Route: 065
  10. LISINOPRIL [Concomitant]
     Route: 048
  11. MIACALCIN [Concomitant]
     Route: 065
  12. AMITRIPTYLINE HYDROCHLORIDE [Concomitant]
     Route: 065
  13. MOTRIN [Concomitant]
     Route: 065
  14. CALCIUM (UNSPECIFIED) AND VITAMIN D (UNSPECIFIED) [Concomitant]
     Route: 048

REACTIONS (24)
  - ANXIETY [None]
  - BLOOD CREATININE INCREASED [None]
  - BONE DISORDER [None]
  - COMPRESSION FRACTURE [None]
  - DEPRESSION [None]
  - DIARRHOEA [None]
  - DIZZINESS [None]
  - FALL [None]
  - FEMUR FRACTURE [None]
  - HAEMATURIA [None]
  - LOW TURNOVER OSTEOPATHY [None]
  - MENTAL STATUS CHANGES [None]
  - NAUSEA [None]
  - OSTEOMYELITIS [None]
  - OSTEONECROSIS [None]
  - PSYCHOTIC DISORDER [None]
  - SINUSITIS [None]
  - SPINAL DISORDER [None]
  - STRESS FRACTURE [None]
  - TRIGONITIS [None]
  - URETHRAL PROLAPSE [None]
  - URINARY INCONTINENCE [None]
  - VAGINAL HAEMORRHAGE [None]
  - VOMITING [None]
